FAERS Safety Report 9786954 (Version 1)
Quarter: 2013Q4

REPORT INFORMATION
  Report Type: Spontaneous
  Country: US (occurrence: US)
  Receive Date: 20131227
  Receipt Date: 20131227
  Transmission Date: 20140711
  Serious: Yes (Other)
  Sender: FDA-Public Use
  Company Number: US-ACTAVIS-2013-23379

PATIENT
  Age: 3 Month
  Sex: Male

DRUGS (3)
  1. PREDNISOLONE (WATSON LABORATORIES) [Suspect]
     Indication: ADRENOGENITAL SYNDROME
     Dosage: 0.5 MG, BID
     Route: 065
  2. SODIUM CHLORIDE [Concomitant]
     Indication: ADRENOGENITAL SYNDROME
     Dosage: 250 MG, BID
     Route: 065
  3. FLUDROCORTISON [Concomitant]
     Indication: ADRENOGENITAL SYNDROME
     Dosage: 0.1 MG, DAILY
     Route: 065

REACTIONS (1)
  - Growth retardation [Recovering/Resolving]
